FAERS Safety Report 16608005 (Version 1)
Quarter: 2019Q3

REPORT INFORMATION
  Report Type: Spontaneous
  Country: JP (occurrence: JP)
  Receive Date: 20190722
  Receipt Date: 20190722
  Transmission Date: 20191004
  Serious: Yes (Other)
  Sender: FDA-Public Use
  Company Number: JP-ACCORD-137375

PATIENT
  Age: 27 Year
  Sex: Male

DRUGS (16)
  1. CLOTRIMAZOLE. [Interacting]
     Active Substance: CLOTRIMAZOLE
     Indication: PRODUCT USED FOR UNKNOWN INDICATION
     Dosage: FOUR TIMES DAILY
     Route: 048
  2. ASCORBIC ACID/CALCIUM [Concomitant]
     Dosage: 200.0 MG/3.0 MG THRICE DAILY
  3. ALENDRONATE SODIUM/ALENDRONIC ACID [Concomitant]
     Dosage: ONCE WEEKLY
  4. AMLODIPINE [Suspect]
     Active Substance: AMLODIPINE BESYLATE
     Indication: PRODUCT USED FOR UNKNOWN INDICATION
     Dosage: ONCE DAILY
     Route: 048
  5. SPIRONOLACTONE. [Concomitant]
     Active Substance: SPIRONOLACTONE
     Dosage: ONCE DAILY
  6. POTASSIUM GLUCONATE [Concomitant]
     Active Substance: POTASSIUM GLUCONATE
     Dosage: THRICE DAILY
  7. ALFACALCIDOL [Concomitant]
     Active Substance: ALFACALCIDOL
     Dosage: ONCE DAILY
  8. TACROLIMUS. [Concomitant]
     Active Substance: TACROLIMUS
     Indication: IMMUNOSUPPRESSANT DRUG THERAPY
     Dosage: TWICE DAILY AT 1.4 MG AND 1.2 MG
     Route: 048
  9. LANSOPRAZOLE. [Interacting]
     Active Substance: LANSOPRAZOLE
     Indication: PRODUCT USED FOR UNKNOWN INDICATION
     Dosage: ONCE DAILY
     Route: 048
  10. LOSARTAN. [Concomitant]
     Active Substance: LOSARTAN
     Dosage: ONCE DAILY
  11. VALPROIC ACID. [Concomitant]
     Active Substance: VALPROIC ACID
     Dosage: TWICE DAILY
  12. EVEROLIMUS. [Interacting]
     Active Substance: EVEROLIMUS
     Indication: PROPHYLAXIS
     Dosage: TWICE DAILY, DOSE WAS ADJUSTED TO A TARGET TROUGH CONCENTRATION (C0) RANGE OF 6.0 TO 8.0 NG/ML
     Route: 048
  13. RAMELTEON [Interacting]
     Active Substance: RAMELTEON
     Indication: PRODUCT USED FOR UNKNOWN INDICATION
     Dosage: ONCE DAILY
     Route: 048
  14. IRON [Concomitant]
     Active Substance: IRON
     Dosage: ONCE DAILY,INCREASED FROM 105.0 TO 210.0 MG/DAY
  15. ACETYLSALICYLIC ACID [Concomitant]
     Active Substance: ASPIRIN
     Dosage: ONCE DAILY
  16. PREDNISOLONE. [Concomitant]
     Active Substance: PREDNISOLONE
     Indication: IMMUNOSUPPRESSANT DRUG THERAPY
     Dosage: TWICE DAILY AT 10.0 MG AND 5.0 MG
     Route: 048

REACTIONS (4)
  - Drug level decreased [Unknown]
  - Heart transplant rejection [Unknown]
  - Drug clearance increased [Unknown]
  - Drug interaction [Unknown]
